FAERS Safety Report 13017778 (Version 4)
Quarter: 2020Q3

REPORT INFORMATION
  Report Type: Spontaneous
  Country: US (occurrence: US)
  Receive Date: 20161212
  Receipt Date: 20200924
  Transmission Date: 20201102
  Serious: No
  Sender: FDA-Public Use
  Company Number: US-PFIZER INC-2016572752

PATIENT
  Age: 61 Year
  Sex: Female
  Weight: 112.5 kg

DRUGS (1)
  1. LYRICA [Suspect]
     Active Substance: PREGABALIN
     Dosage: 150 MG, FOUR TIMES A DAY
     Route: 048

REACTIONS (2)
  - Headache [Unknown]
  - Malaise [Unknown]
